FAERS Safety Report 7973714-4 (Version None)
Quarter: 2011Q4

REPORT INFORMATION
  Report Type: 
  Country: None (occurrence: None)
  Receive Date: 20111213
  Receipt Date: 20111213
  Transmission Date: 20120403
  Serious: Yes (Death, Other)
  Sender: FDA-Public Use
  Company Number: None

PATIENT
  Age: 76 Year
  Sex: Male
  Weight: 76.3 kg

DRUGS (1)
  1. METHOTREXATE [Suspect]

REACTIONS (10)
  - POST HERPETIC NEURALGIA [None]
  - HYPOACUSIS [None]
  - MENTAL STATUS CHANGES [None]
  - PRESYNCOPE [None]
  - ELECTROLYTE IMBALANCE [None]
  - HALLUCINATION [None]
  - ABNORMAL BEHAVIOUR [None]
  - ATRIAL FIBRILLATION [None]
  - ANAEMIA [None]
  - PAIN [None]
